FAERS Safety Report 8142644-X (Version None)
Quarter: 2012Q1

REPORT INFORMATION
  Report Type: 
  Country: None (occurrence: None)
  Receive Date: 20120216
  Receipt Date: 20120209
  Transmission Date: 20120608
  Serious: Yes (Other)
  Sender: FDA-Public Use
  Company Number: BR-ABBOTT-12P-020-0903524-00

PATIENT
  Sex: Female
  Weight: 70 kg

DRUGS (9)
  1. DERSAB SOAP [Concomitant]
     Indication: BLISTER
     Route: 061
     Dates: start: 20111101
  2. UNSPECIFIED MEDICATION [Concomitant]
     Indication: BLISTER
     Route: 062
     Dates: start: 20111101
  3. DIPYRONE INJ [Concomitant]
     Indication: PAIN
     Route: 048
  4. HUMIRA [Suspect]
     Indication: CROHN'S DISEASE
     Dosage: INDUCTION DOSE
     Route: 058
     Dates: start: 20111201
  5. HUMIRA [Suspect]
     Route: 058
  6. DERSAB SOAP [Concomitant]
  7. MESALAMINE [Concomitant]
     Indication: CROHN'S DISEASE
     Dosage: 2 IN THE MORNING, 2 IN THE AFTERNOON, 2 AT NIGHT
     Route: 048
     Dates: start: 20060101
  8. UNSPECIFIED MEDICATION [Concomitant]
  9. HUMIRA [Suspect]
     Dosage: INDUCTION DOSE
     Route: 058

REACTIONS (14)
  - TOOTH INFECTION [None]
  - EYE SWELLING [None]
  - EYE PAIN [None]
  - TOOTHACHE [None]
  - PURULENT DISCHARGE [None]
  - SKIN EXFOLIATION [None]
  - ERYTHEMA [None]
  - WOUND [None]
  - BLISTER [None]
  - DIARRHOEA [None]
  - PAIN [None]
  - FATIGUE [None]
  - HEADACHE [None]
  - TOOTH DISORDER [None]
